FAERS Safety Report 26087090 (Version 1)
Quarter: 2025Q4

REPORT INFORMATION
  Report Type: Spontaneous
  Country: US (occurrence: None)
  Receive Date: 20251125
  Receipt Date: 20251125
  Transmission Date: 20260117
  Serious: Yes (Other)
  Sender: FDA-CTU
  Company Number: None

PATIENT
  Age: 35 Year
  Sex: Male
  Weight: 84.6 kg

DRUGS (1)
  1. TASCENSO ODT [Suspect]
     Active Substance: FINGOLIMOD LAURYL SULFATE
     Indication: Multiple sclerosis
     Dosage: FREQUENCY : DAILY;?
     Route: 048
     Dates: start: 20250411

REACTIONS (4)
  - Gait disturbance [None]
  - Muscular weakness [None]
  - Lethargy [None]
  - Therapy non-responder [None]

NARRATIVE: CASE EVENT DATE: 20251121
